FAERS Safety Report 6653365-4 (Version None)
Quarter: 2010Q1

REPORT INFORMATION
  Report Type: 
  Country: None (occurrence: None)
  Receive Date: 20100326
  Receipt Date: 20100316
  Transmission Date: 20100710
  Serious: Yes (Hospitalization)
  Sender: FDA-Public Use
  Company Number: US-ROCHE-692010

PATIENT
  Sex: Female
  Weight: 78.7 kg

DRUGS (3)
  1. AVASTIN [Suspect]
     Dosage: DATES OF USE: ABOUT A MONTH
     Route: 042
     Dates: start: 20100209, end: 20100316
  2. TAXOL [Concomitant]
  3. CARBOPLATIN [Concomitant]
     Dosage: DOSE: 6AUC

REACTIONS (2)
  - CONVULSION [None]
  - HEADACHE [None]
